FAERS Safety Report 4628445-5 (Version None)
Quarter: 2005Q2

REPORT INFORMATION
  Report Type: 
  Country: None (occurrence: None)
  Receive Date: 20050404
  Receipt Date: 20050323
  Transmission Date: 20051028
  Serious: Yes (Other)
  Sender: FDA-Public Use
  Company Number: 2005036506

PATIENT
  Age: 76 Year
  Sex: Female
  Weight: 71.2147 kg

DRUGS (8)
  1. NEURONTIN [Suspect]
     Indication: NEUROPATHY PERIPHERAL
     Dosage: 2400 MG (800 MG, 3 IN 1 D), ORAL  7-8 YEARS AGO
     Route: 048
  2. GABAPENTIN [Suspect]
     Indication: NEUROPATHY PERIPHERAL
     Dosage: 2400 MG (800 MG, 3 IN 1 D), ORAL
     Route: 048
     Dates: start: 20050101
  3. VERAPAMIL HCL [Concomitant]
  4. HYDROCHLOROTHIAZIDE [Concomitant]
  5. CONJUGATED ESTROGENS [Concomitant]
  6. MULTIVITAMINS (ASCORBIC ACID, ERGOCALCIFEROL, FOLIC ACID, NICOTINAMIDE [Concomitant]
  7. LEKOVIT CA (CALCIUM CARBONATE, COLECALCIFEROL) [Concomitant]
  8. OMEPRAZOLE [Concomitant]

REACTIONS (8)
  - CONDITION AGGRAVATED [None]
  - DIABETES MELLITUS [None]
  - DRUG EFFECT DECREASED [None]
  - GALLBLADDER OPERATION [None]
  - INSOMNIA [None]
  - NEUROPATHY PERIPHERAL [None]
  - PARAESTHESIA [None]
  - PHARMACEUTICAL PRODUCT COMPLAINT [None]
